FAERS Safety Report 10481852 (Version 1)
Quarter: 2014Q3

REPORT INFORMATION
  Report Type: Spontaneous
  Country: IE (occurrence: IE)
  Receive Date: 20140929
  Receipt Date: 20140929
  Transmission Date: 20150326
  Serious: Yes (Hospitalization, Other)
  Sender: FDA-Public Use
  Company Number: PHHY2014IE122140

PATIENT
  Age: 79 Year
  Sex: Male

DRUGS (2)
  1. WARFARIN [Suspect]
     Active Substance: WARFARIN
     Indication: MITRAL VALVE REPLACEMENT
  2. WARFARIN [Suspect]
     Active Substance: WARFARIN
     Indication: ATRIAL FIBRILLATION

REACTIONS (7)
  - Overdose [Unknown]
  - Confusional state [Unknown]
  - Oesophageal ulcer [Unknown]
  - Haematemesis [Unknown]
  - International normalised ratio increased [Unknown]
  - Subdural haematoma [Unknown]
  - Incorrect dose administered [Unknown]
